FAERS Safety Report 19955334 (Version 2)
Quarter: 2025Q3

REPORT INFORMATION
  Report Type: Spontaneous
  Country: EU (occurrence: EU)
  Receive Date: 20211013
  Receipt Date: 20250904
  Transmission Date: 20251020
  Serious: Yes (Other)
  Sender: ETHYPHARM
  Company Number: EU-EMA-DD-20210928-KUMARVN_P-092031

PATIENT
  Age: 30 Year
  Sex: Male

DRUGS (4)
  1. BUPRENORPHINE [Interacting]
     Active Substance: BUPRENORPHINE
     Indication: Product used for unknown indication
  2. .ALPHA.-PYRROLIDINOVALEROTHIOPHENONE [Suspect]
     Active Substance: .ALPHA.-PYRROLIDINOVALEROTHIOPHENONE
     Indication: Product used for unknown indication
  3. PREGABALIN [Interacting]
     Active Substance: PREGABALIN
     Indication: Product used for unknown indication
  4. ALCOHOL [Interacting]
     Active Substance: ALCOHOL
     Indication: Product used for unknown indication

REACTIONS (5)
  - Drug interaction [Unknown]
  - Drug dependence [Unknown]
  - Impaired driving ability [Unknown]
  - Aggression [Unknown]
  - Drug abuse [Unknown]
